FAERS Safety Report 5361592-1 (Version None)
Quarter: 2007Q2

REPORT INFORMATION
  Report Type: 
  Country: None (occurrence: None)
  Receive Date: 20070615
  Receipt Date: 20070615
  Transmission Date: 20071010
  Serious: No
  Sender: FDA-Public Use
  Company Number: None

PATIENT
  Sex: Male

DRUGS (1)
  1. LYRICA [Suspect]
     Indication: PAIN
     Dosage: 25MG BID G-TUBE
     Dates: start: 20070607, end: 20070611

REACTIONS (3)
  - CONVULSION [None]
  - MOVEMENT DISORDER [None]
  - MYOCLONUS [None]
